FAERS Safety Report 6941727-7 (Version None)
Quarter: 2010Q3

REPORT INFORMATION
  Report Type: 
  Country: None (occurrence: None)
  Receive Date: 20100826
  Receipt Date: 20100818
  Transmission Date: 20110219
  Serious: Yes (Other)
  Sender: FDA-Public Use
  Company Number: US-BIOGENIDEC-2010BI028867

PATIENT
  Age: 55 Year
  Sex: Male

DRUGS (1)
  1. TYSABRI [Suspect]
     Indication: MULTIPLE SCLEROSIS
     Route: 042
     Dates: start: 20100617, end: 20100818

REACTIONS (6)
  - BLOOD PRESSURE DECREASED [None]
  - CONVULSION [None]
  - NAUSEA [None]
  - PRURITUS [None]
  - RETCHING [None]
  - SKIN DISCOLOURATION [None]
